FAERS Safety Report 20452180 (Version 1)
Quarter: 2022Q1

REPORT INFORMATION
  Report Type: Spontaneous
  Country: US (occurrence: US)
  Receive Date: 20220209
  Receipt Date: 20220209
  Transmission Date: 20220423
  Serious: No
  Sender: FDA-Public Use
  Company Number: US-AERIE-2021-001989

PATIENT
  Age: 66 Year
  Sex: Male

DRUGS (4)
  1. RHOPRESSA [Suspect]
     Active Substance: NETARSUDIL MESYLATE
     Indication: Corneal oedema
     Dosage: UNK UNK, QD
     Route: 047
  2. SODIUM CHLORIDE [Concomitant]
     Active Substance: SODIUM CHLORIDE
     Indication: Corneal oedema
     Dosage: UNK, QID, OD
  3. SODIUM CHLORIDE [Concomitant]
     Active Substance: SODIUM CHLORIDE
     Dosage: UNK, QHS, OD
     Route: 047
  4. BRIMONIDINE [Concomitant]
     Active Substance: BRIMONIDINE TARTRATE
     Indication: Corneal oedema
     Dosage: UNK, TID, OD
     Route: 047

REACTIONS (2)
  - Corneal oedema [Recovered/Resolved]
  - Off label use [Unknown]
